FAERS Safety Report 24453293 (Version 2)
Quarter: 2024Q4

REPORT INFORMATION
  Report Type: Report from Study
  Country: ZA (occurrence: ZA)
  Receive Date: 20241017
  Receipt Date: 20241018
  Transmission Date: 20250114
  Serious: No
  Sender: ROCHE
  Company Number: ZA-ROCHE-3349184

PATIENT
  Age: 67 Year
  Sex: Male

DRUGS (2)
  1. RITUXIMAB [Suspect]
     Active Substance: RITUXIMAB
     Indication: Rheumatoid arthritis
     Dosage: THERE AFTER EVERY 6MONTHS
     Route: 041
     Dates: start: 20220414
  2. RITUXIMAB [Suspect]
     Active Substance: RITUXIMAB
     Route: 042

REACTIONS (7)
  - Blood creatinine increased [Unknown]
  - Rheumatoid arthritis [Unknown]
  - Sciatica [Unknown]
  - Rotator cuff syndrome [Unknown]
  - Urinary tract infection [Unknown]
  - Ill-defined disorder [Unknown]
  - Musculoskeletal disorder [Unknown]

NARRATIVE: CASE EVENT DATE: 20230101
